FAERS Safety Report 13349654 (Version 3)
Quarter: 2017Q2

REPORT INFORMATION
  Report Type: Report from Study
  Country: DE (occurrence: DE)
  Receive Date: 20170320
  Receipt Date: 20170605
  Transmission Date: 20170830
  Serious: Yes (Death, Hospitalization)
  Sender: FDA-Public Use
  Company Number: PHHY2017DE011774

PATIENT
  Age: 84 Year
  Sex: Male
  Weight: 83 kg

DRUGS (9)
  1. CIPRO [Concomitant]
     Active Substance: CIPROFLOXACIN HYDROCHLORIDE
     Indication: INFECTION
     Dosage: 500 MG, QD
     Route: 048
     Dates: start: 20161107
  2. ASPIRIN. [Concomitant]
     Active Substance: ASPIRIN
     Indication: HYPERTENSION
     Dosage: 100 MG, QD
     Route: 048
  3. EXJADE [Suspect]
     Active Substance: DEFERASIROX
     Indication: MYELODYSPLASTIC SYNDROME
     Dosage: 2 DF (500 MG), QD (12.19 MG/KG BODY WEIGHT/DAY)
     Route: 048
     Dates: start: 20160823, end: 20160905
  4. CANDESARTAN. [Concomitant]
     Active Substance: CANDESARTAN
     Indication: HYPERTENSION
     Dosage: 16 MG, QD
     Route: 048
  5. TRENANTONE [Concomitant]
     Active Substance: LEUPROLIDE ACETATE
     Indication: PROSTATE CANCER
     Dosage: 11.25 MG, (EVERY 3 MONTHS)
     Route: 030
  6. PANTOPRAZOLE [Concomitant]
     Active Substance: PANTOPRAZOLE
     Indication: DYSPEPSIA
     Dosage: 40 MG, QD
     Route: 048
     Dates: start: 20161121
  7. EXJADE [Suspect]
     Active Substance: DEFERASIROX
     Indication: THROMBOCYTOPENIA
     Dosage: 3 DF (500 MG), QD (18.29 MG/KG BODY WEIGHT/DAY)
     Route: 048
     Dates: start: 20160906, end: 20161120
  8. EXJADE [Suspect]
     Active Substance: DEFERASIROX
     Dosage: 3 DF (500 MG), QD (18.29 MG/KG BODY WEIGHT/DAY)
     Route: 048
     Dates: start: 20161130, end: 20170109
  9. ACC [Concomitant]
     Active Substance: ACETYLCYSTEINE
     Indication: INFECTION
     Dosage: 600 MG, QD
     Route: 048
     Dates: start: 20161107

REACTIONS (3)
  - Venous thrombosis [Recovered/Resolved]
  - Myelodysplastic syndrome [Fatal]
  - Peripheral swelling [Recovered/Resolved]

NARRATIVE: CASE EVENT DATE: 20170109
